FAERS Safety Report 9880337 (Version 4)
Quarter: 2014Q1

REPORT INFORMATION
  Report Type: Spontaneous
  Country: FI (occurrence: FI)
  Receive Date: 20140207
  Receipt Date: 20140313
  Transmission Date: 20141002
  Serious: Yes (Death, Hospitalization, Other)
  Sender: FDA-Public Use
  Company Number: FI-AMGEN-FINSP2014008344

PATIENT
  Age: 76 Year
  Sex: Female

DRUGS (5)
  1. NEULASTA [Suspect]
     Indication: PROPHYLAXIS
     Dosage: 6 MG, UNK
     Route: 058
  2. ETOPOSIDE [Concomitant]
     Dosage: UNK
  3. SOMAC [Concomitant]
     Dosage: UNK
  4. MIRTAZAPINE [Concomitant]
     Dosage: UNK
  5. CITALOPRAM [Concomitant]
     Dosage: UNK

REACTIONS (13)
  - Investigation [Fatal]
  - Vasculitis [Unknown]
  - Chloroma [Unknown]
  - Acute myeloid leukaemia [Unknown]
  - Ovarian adenoma [Unknown]
  - Differential white blood cell count abnormal [Unknown]
  - Rash [Unknown]
  - Eczema [Unknown]
  - Pruritus [Unknown]
  - Fatigue [Unknown]
  - Dyspnoea [Unknown]
  - Mucous membrane disorder [Unknown]
  - Pyrexia [Unknown]
